FAERS Safety Report 6279978-X (Version None)
Quarter: 2009Q3

REPORT INFORMATION
  Report Type: 
  Country: None (occurrence: None)
  Receive Date: 20090723
  Receipt Date: 20090505
  Transmission Date: 20100115
  Serious: No
  Sender: FDA-Public Use
  Company Number: US-AMGEN-KDL345980

PATIENT
  Sex: Male
  Weight: 89.9 kg

DRUGS (7)
  1. PROCRIT [Suspect]
     Indication: ANAEMIA
     Route: 058
     Dates: start: 20080101, end: 20090401
  2. PROGRAF [Concomitant]
  3. CELLCEPT [Concomitant]
  4. COLCHICINE [Concomitant]
  5. ALLOPURINOL [Concomitant]
  6. CLONIDINE [Concomitant]
  7. NORVASC [Concomitant]

REACTIONS (2)
  - HAEMOGLOBIN DECREASED [None]
  - OSTEOPOROSIS [None]
